FAERS Safety Report 13742303 (Version 1)
Quarter: 2017Q3

REPORT INFORMATION
  Report Type: Report from Study
  Country: DE (occurrence: DE)
  Receive Date: 20170711
  Receipt Date: 20170711
  Transmission Date: 20171127
  Serious: Yes (Hospitalization)
  Sender: FDA-Public Use
  Company Number: DE-ROCHE-1596707

PATIENT
  Age: 42 Year
  Sex: Female
  Weight: 73.9 kg

DRUGS (10)
  1. L-THYROX [Concomitant]
     Active Substance: LEVOTHYROXINE SODIUM
     Indication: HYPOTHYROIDISM
     Dosage: FORM STRENGTH: 112/140
     Route: 065
     Dates: end: 20160216
  2. CLEXANE [Concomitant]
     Active Substance: ENOXAPARIN SODIUM
     Indication: THROMBOSIS
     Route: 065
  3. FERINJECT [Concomitant]
     Active Substance: FERRIC CARBOXYMALTOSE
     Indication: ANAEMIA
     Route: 065
     Dates: start: 20150527, end: 20150527
  4. ASPIRIN. [Concomitant]
     Active Substance: ASPIRIN
     Indication: THROMBOSIS PROPHYLAXIS
     Route: 065
     Dates: start: 20150119, end: 20160525
  5. COBIMETINIB. [Suspect]
     Active Substance: COBIMETINIB
     Indication: NEOPLASM
     Dosage: DATE OF MOST RECENT DOSE PRIOR TO SAE: 17/JUN/2015, 60 MG
     Route: 048
     Dates: start: 20141222
  6. RBC TRANSFUSION [Concomitant]
     Indication: ANAEMIA
     Route: 065
     Dates: start: 20150527, end: 20150527
  7. ATEZOLIZUMAB. [Suspect]
     Active Substance: ATEZOLIZUMAB
     Indication: NEOPLASM
     Dosage: DATE OF MOST RECENT DOSE PRIOR TO SAE: 08/JUN/2015, 800 MG AT 10:35.
     Route: 042
     Dates: start: 20141208
  8. PANTOZOL [Concomitant]
     Active Substance: PANTOPRAZOLE SODIUM
     Indication: GASTRITIS
     Route: 065
  9. LEVETIRACETAM. [Concomitant]
     Active Substance: LEVETIRACETAM
     Indication: EPILEPSY
     Route: 065
     Dates: start: 20141209
  10. FERINJECT [Concomitant]
     Active Substance: FERRIC CARBOXYMALTOSE
     Route: 065
     Dates: start: 20150608, end: 20150608

REACTIONS (1)
  - Bacterial infection [Recovered/Resolved]

NARRATIVE: CASE EVENT DATE: 20150617
